FAERS Safety Report 5581155-2 (Version None)
Quarter: 2007Q4

REPORT INFORMATION
  Report Type: 
  Country: None (occurrence: None)
  Receive Date: 20071227
  Receipt Date: 20071219
  Transmission Date: 20080405
  Serious: Yes (Hospitalization)
  Sender: FDA-Public Use
  Company Number: 2007BI024601

PATIENT
  Sex: Female

DRUGS (7)
  1. NATALIZUMAB (NATALIZUMAB) [Suspect]
     Indication: MULTIPLE SCLEROSIS
     Dosage: 300 MG; QM; IV
     Route: 042
     Dates: start: 20071009
  2. TIZANIDINE HCL [Concomitant]
  3. ESCITALOPRAM [Concomitant]
  4. NEUROFENATIN [Concomitant]
  5. OXYBUTYNIN CHLORIDE [Concomitant]
  6. AMANTADINE HCL [Concomitant]
  7. ACETAMINOPHEN [Concomitant]

REACTIONS (1)
  - CHOLELITHIASIS [None]
